FAERS Safety Report 24652191 (Version 3)
Quarter: 2024Q4

REPORT INFORMATION
  Report Type: Spontaneous
  Country: US (occurrence: US)
  Receive Date: 20241122
  Receipt Date: 20241227
  Transmission Date: 20250115
  Serious: No
  Sender: PFIZER
  Company Number: US-PFIZER INC-202400304923

PATIENT
  Age: 13 Year
  Sex: Male

DRUGS (2)
  1. GENOTROPIN [Suspect]
     Active Substance: SOMATROPIN
     Indication: Growth hormone deficiency
     Dosage: 2.6 MG 6 NIGHTS PER WEEK
     Dates: start: 2024
  2. GUANFACINE [Concomitant]
     Active Substance: GUANFACINE
     Indication: Anxiety
     Dosage: 3MG TABLET EVERY MORNING
     Route: 048

REACTIONS (2)
  - Drug dose omission by device [Unknown]
  - Device issue [Unknown]
